FAERS Safety Report 9067067 (Version 1)
Quarter: 2013Q1

REPORT INFORMATION
  Report Type: Report from Study
  Country: US (occurrence: US)
  Receive Date: 20130201
  Receipt Date: 20130201
  Transmission Date: 20140127
  Serious: No
  Sender: FDA-Public Use
  Company Number: US-ABBOTT-12P-163-1028370-00

PATIENT
  Age: 16 Year
  Sex: Female

DRUGS (5)
  1. HUMIRA [Suspect]
     Indication: CROHN^S DISEASE
  2. METHOTREXATE [Concomitant]
     Indication: CROHN^S DISEASE
     Dosage: 15MG EVERY SATURDAY
  3. FOLIC ACID [Concomitant]
     Indication: CROHN^S DISEASE
     Dosage: 1000MG DAILY
  4. CELEXA [Concomitant]
     Indication: ANXIETY
     Dosage: 40MG DAILY
  5. SEROQUEL [Concomitant]
     Indication: ANXIETY
     Dosage: AT BEDTIME

REACTIONS (2)
  - Anxiety [Not Recovered/Not Resolved]
  - Injection site pain [Not Recovered/Not Resolved]
